FAERS Safety Report 18371701 (Version 4)
Quarter: 2025Q3

REPORT INFORMATION
  Report Type: Spontaneous
  Country: US (occurrence: US)
  Receive Date: 20201012
  Receipt Date: 20250725
  Transmission Date: 20251021
  Serious: No
  Sender: AMGEN
  Company Number: US-AMGEN-USASP2020163073

PATIENT
  Age: 37 Year
  Sex: Male

DRUGS (13)
  1. OTEZLA [Suspect]
     Active Substance: APREMILAST
     Indication: Psoriasis
     Dosage: 30 MILLIGRAM, BID
     Route: 048
     Dates: start: 20171129
  2. OTEZLA [Suspect]
     Active Substance: APREMILAST
     Dosage: 30 MILLIGRAM, QD
     Route: 048
     Dates: start: 201902
  3. Betameth [Concomitant]
  4. EUCRISA [Concomitant]
     Active Substance: CRISABOROLE
  5. HALOBETASOL [Concomitant]
     Active Substance: HALOBETASOL
  6. A-HYDROCORT [Concomitant]
     Active Substance: HYDROCORTISONE SODIUM SUCCINATE
  7. KETOCONAZOLE [Concomitant]
     Active Substance: KETOCONAZOLE
  8. Clotrim [Concomitant]
  9. FLUCONAZOLE [Concomitant]
     Active Substance: FLUCONAZOLE
  10. NAPROXEN [Concomitant]
     Active Substance: NAPROXEN
  11. OXYCODONE AND ACETAMINOPHEN [Concomitant]
     Active Substance: ACETAMINOPHEN\OXYCODONE HYDROCHLORIDE
  12. PREDNISOLONE [Concomitant]
     Active Substance: PREDNISOLONE
  13. VTAMA [Concomitant]
     Active Substance: TAPINAROF

REACTIONS (4)
  - Therapy non-responder [Unknown]
  - Psoriasis [Unknown]
  - Off label use [Unknown]
  - Product dose omission issue [Unknown]

NARRATIVE: CASE EVENT DATE: 20190201
